FAERS Safety Report 11264929 (Version 2)
Quarter: 2015Q3

REPORT INFORMATION
  Report Type: Spontaneous
  Country: FR (occurrence: FR)
  Receive Date: 20150713
  Receipt Date: 20150727
  Transmission Date: 20151125
  Serious: No
  Sender: FDA-Public Use
  Company Number: FR-JNJFOC-20150704182

PATIENT
  Sex: Male
  Weight: 75 kg

DRUGS (1)
  1. DUROGESIC [Suspect]
     Active Substance: FENTANYL
     Indication: PROCEDURAL PAIN
     Dosage: 25 UG/HR
     Route: 062

REACTIONS (2)
  - Product use issue [Unknown]
  - Drug prescribing error [Unknown]
